FAERS Safety Report 9222547 (Version 1)
Quarter: 2013Q2

REPORT INFORMATION
  Report Type: Spontaneous
  Country: FR (occurrence: FR)
  Receive Date: 20130410
  Receipt Date: 20130410
  Transmission Date: 20140414
  Serious: Yes (Hospitalization, Other)
  Sender: FDA-Public Use
  Company Number: FR-009507513-1301FRA012518

PATIENT
  Sex: Male

DRUGS (8)
  1. NORSET [Suspect]
     Indication: DEPRESSION
     Dosage: 45 MG, QD
     Route: 048
     Dates: start: 201207, end: 20121218
  2. NORSET [Suspect]
     Dosage: 30 MG, QD
     Route: 048
     Dates: start: 20121218
  3. COZAAR 50 MG, COMPRIM? PELLICUL? [Concomitant]
  4. METFORMIN [Concomitant]
  5. INIPOMP [Concomitant]
  6. DETENSIEL [Concomitant]
  7. CLISOR [Concomitant]
  8. SERC (BETAHISTINE HYDROCHLORIDE) [Concomitant]

REACTIONS (5)
  - Metabolic encephalopathy [Recovered/Resolved]
  - Recurrent cancer [Unknown]
  - Hyponatraemia [Recovered/Resolved]
  - Confusional state [Recovered/Resolved]
  - Drug ineffective [Unknown]
